FAERS Safety Report 25133227 (Version 2)
Quarter: 2025Q4

REPORT INFORMATION
  Report Type: Report from Study
  Country: EU (occurrence: EU)
  Receive Date: 20250328
  Receipt Date: 20251020
  Transmission Date: 20260118
  Serious: Yes (Death, Hospitalization)
  Sender: JOHNSON AND JOHNSON
  Company Number: EU-JNJFOC-20250368428

PATIENT
  Age: 93 Year
  Sex: Male
  Weight: 72 kg

DRUGS (4)
  1. TECVAYLI [Suspect]
     Active Substance: TECLISTAMAB-CQYV
     Indication: Plasma cell myeloma
     Dosage: FROM MONTH 2 DAY 1 TO END OF MONTH 6
     Route: 065
     Dates: start: 20241107, end: 20241107
  2. DEXAMETHASONE [Concomitant]
     Active Substance: DEXAMETHASONE
     Indication: Prophylaxis
     Dates: start: 20241107, end: 20241115
  3. POLARAMINE [Concomitant]
     Active Substance: DEXCHLORPHENIRAMINE MALEATE
     Indication: Prophylaxis
     Dates: start: 20241107, end: 20241115
  4. VALACYCLOVIR HYDROCHLORIDE [Concomitant]
     Active Substance: VALACYCLOVIR HYDROCHLORIDE
     Indication: Prophylaxis
     Dates: start: 20241107

REACTIONS (1)
  - Immune effector cell-associated neurotoxicity syndrome [Fatal]

NARRATIVE: CASE EVENT DATE: 20241109
